FAERS Safety Report 5671541-4 (Version None)
Quarter: 2008Q1

REPORT INFORMATION
  Report Type: 
  Country: None (occurrence: None)
  Receive Date: 20080318
  Receipt Date: 20080317
  Transmission Date: 20080703
  Serious: Yes (Other)
  Sender: FDA-Public Use
  Company Number: NL-BOEHRINGER INGELHEIM GMBH, GERMANY-2008-DE-01648GD

PATIENT
  Age: 2 Day
  Sex: Male

DRUGS (3)
  1. MORPHINE [Suspect]
     Indication: PAIN
     Dosage: 5000 MCG/KG
     Route: 042
  2. PARACETAMOL [Suspect]
     Indication: PAIN
     Route: 048
  3. PHENOBARBITAL TAB [Suspect]
     Indication: CONVULSION NEONATAL
     Dosage: 20 MG/KG

REACTIONS (8)
  - ACCIDENTAL OVERDOSE [None]
  - APNOEA [None]
  - DRUG INEFFECTIVE [None]
  - ELECTROENCEPHALOGRAM ABNORMAL [None]
  - HYPOTONIA [None]
  - RESPIRATORY DEPRESSION [None]
  - SEDATION [None]
  - WRONG TECHNIQUE IN DRUG USAGE PROCESS [None]
